FAERS Safety Report 23215541 (Version 1)
Quarter: 2023Q4

REPORT INFORMATION
  Report Type: Spontaneous
  Country: US (occurrence: US)
  Receive Date: 20231122
  Receipt Date: 20231122
  Transmission Date: 20240110
  Serious: Yes (Other)
  Sender: FDA-Public Use
  Company Number: US-009507513-2311USA006657

PATIENT
  Age: 78 Year
  Sex: Male

DRUGS (1)
  1. KEYTRUDA [Suspect]
     Active Substance: PEMBROLIZUMAB
     Indication: Lung neoplasm malignant
     Dosage: UNK

REACTIONS (4)
  - Primary adrenal insufficiency [Not Recovered/Not Resolved]
  - Primary hyperthyroidism [Recovered/Resolved]
  - Thyroiditis [Recovered/Resolved with Sequelae]
  - Primary hypothyroidism [Not Recovered/Not Resolved]
